FAERS Safety Report 9461813 (Version 2)
Quarter: 2015Q1

REPORT INFORMATION
  Report Type: Report from Study
  Country: JP (occurrence: JP)
  Receive Date: 20130816
  Receipt Date: 20150205
  Transmission Date: 20150721
  Serious: Yes (Life-Threatening, Other)
  Sender: FDA-Public Use
  Company Number: JP-009507513-1308JPN005417

PATIENT
  Age: 60 Year
  Sex: Male
  Weight: 56 kg

DRUGS (12)
  1. TEMOZOLOMIDE. [Suspect]
     Active Substance: TEMOZOLOMIDE
     Dosage: 150 MG/M2, QD
     Route: 041
     Dates: start: 20120213, end: 20120217
  2. MOBIC [Concomitant]
     Active Substance: MELOXICAM
     Dosage: DAILY DOSE UNKNOWN (FORMULATION POR)
     Route: 048
     Dates: start: 20101223, end: 20120513
  3. TEMODAL [Suspect]
     Active Substance: TEMOZOLOMIDE
     Indication: GLIOBLASTOMA MULTIFORME
     Dosage: DAILY DOSE UNKNOWN
     Route: 048
     Dates: start: 20101228, end: 20111207
  4. FERON [Concomitant]
     Active Substance: INTERFERON BETA
     Dosage: DAILY DOSE UNKNOWN
     Route: 051
     Dates: start: 20101228, end: 20120420
  5. TEMOZOLOMIDE. [Suspect]
     Active Substance: TEMOZOLOMIDE
     Dosage: 150 MG/M2, QD
     Route: 041
     Dates: start: 20120312, end: 20120316
  6. TOPINA [Concomitant]
     Active Substance: TOPIRAMATE
     Dosage: DAILY DOSE UNKNOWN (FORMULATION POR)
     Route: 048
     Dates: start: 20101223, end: 20110515
  7. TEMOZOLOMIDE. [Suspect]
     Active Substance: TEMOZOLOMIDE
     Indication: GLIOBLASTOMA MULTIFORME
     Dosage: 150 MG/M2, QD
     Route: 041
     Dates: start: 20111208, end: 20111212
  8. TEMOZOLOMIDE. [Suspect]
     Active Substance: TEMOZOLOMIDE
     Dosage: 150 MG/M2, QD
     Route: 041
     Dates: start: 20120416, end: 20120418
  9. TEMOZOLOMIDE. [Suspect]
     Active Substance: TEMOZOLOMIDE
     Dosage: 150 MG/M2, QD
     Route: 041
     Dates: start: 20120116, end: 20120120
  10. BAKTAR [Concomitant]
     Active Substance: SULFAMETHOXAZOLE\TRIMETHOPRIM
     Indication: ANTIFUNGAL PROPHYLAXIS
     Dosage: DAILY DOSE UNKNOWN (FORMULATION POR)
     Route: 048
     Dates: start: 20101228, end: 20110214
  11. TAGAMET [Concomitant]
     Active Substance: CIMETIDINE
     Dosage: DAILY DOSE UNKNOWN (FORMULATION POR)
     Route: 048
     Dates: start: 20101223, end: 20120513
  12. DEPAKENE [Concomitant]
     Active Substance: VALPROIC ACID
     Dosage: DAILY DOSE UNKNOWN (FORMULATION POR)
     Route: 048
     Dates: start: 20101223, end: 20120513

REACTIONS (3)
  - Pneumonia aspiration [Recovering/Resolving]
  - Bone marrow failure [Recovered/Resolved]
  - Bone marrow failure [Recovered/Resolved]

NARRATIVE: CASE EVENT DATE: 20110207
